FAERS Safety Report 5305946-8 (Version None)
Quarter: 2007Q2

REPORT INFORMATION
  Report Type: 
  Country: None (occurrence: None)
  Receive Date: 20070424
  Receipt Date: 20070418
  Transmission Date: 20071010
  Serious: Yes (Hospitalization)
  Sender: FDA-Public Use
  Company Number: US-JNJFOC-20070206548

PATIENT
  Sex: Female
  Weight: 118.39 kg

DRUGS (15)
  1. FLEXERIL [Suspect]
     Indication: MUSCLE SPASMS
     Route: 048
  2. FENTANYL [Suspect]
     Indication: BREAKTHROUGH PAIN
     Route: 002
  3. TENORMIN [Suspect]
     Indication: HYPERTENSION
     Route: 048
  4. LIORESAL [Suspect]
     Indication: MUSCLE SPASMS
     Route: 048
  5. KLONOPIN [Suspect]
     Indication: ANXIETY
     Route: 048
  6. METHADONE HCL [Suspect]
     Indication: PAIN MANAGEMENT
     Route: 048
  7. PROTONIX [Concomitant]
     Indication: DRUG USE FOR UNKNOWN INDICATION
  8. IBUPROFEN [Concomitant]
     Indication: DRUG USE FOR UNKNOWN INDICATION
  9. ALBUTEROL [Concomitant]
     Indication: DRUG USE FOR UNKNOWN INDICATION
  10. TRAZODONE HCL [Concomitant]
     Indication: DRUG USE FOR UNKNOWN INDICATION
  11. CELEXA [Concomitant]
     Indication: DRUG USE FOR UNKNOWN INDICATION
  12. AMITRIPTYLINE HCL [Concomitant]
     Indication: DRUG USE FOR UNKNOWN INDICATION
  13. TOPAMAX [Concomitant]
     Indication: DRUG USE FOR UNKNOWN INDICATION
  14. PERCOCET [Concomitant]
     Indication: DRUG USE FOR UNKNOWN INDICATION
  15. OXYCODONE HCL [Concomitant]
     Indication: PAIN MANAGEMENT

REACTIONS (5)
  - DEPRESSED LEVEL OF CONSCIOUSNESS [None]
  - HYPOTENSION [None]
  - LETHARGY [None]
  - MULTIPLE DRUG OVERDOSE ACCIDENTAL [None]
  - PNEUMONIA [None]
